FAERS Safety Report 7177057-0 (Version None)
Quarter: 2010Q4

REPORT INFORMATION
  Report Type: 
  Country: None (occurrence: None)
  Receive Date: 20101220
  Receipt Date: 20101207
  Transmission Date: 20110411
  Serious: Yes (Other)
  Sender: FDA-Public Use
  Company Number: US-SANOFI-AVENTIS-2010SA074185

PATIENT
  Age: 83 Year
  Sex: Male

DRUGS (7)
  1. MULTAQ [Suspect]
     Indication: ATRIAL FIBRILLATION
     Route: 048
     Dates: start: 20101129
  2. DABIGATRAN ETEXILATE [Suspect]
     Route: 065
     Dates: start: 20101129
  3. GLIPIZIDE [Concomitant]
  4. LASIX [Concomitant]
     Route: 065
  5. LASIX [Concomitant]
     Route: 065
  6. VITAMINS [Concomitant]
  7. METOPROLOL TARTRATE [Concomitant]

REACTIONS (5)
  - ATRIAL FIBRILLATION [None]
  - BRONCHITIS [None]
  - DYSPNOEA [None]
  - HEART RATE DECREASED [None]
  - SWELLING [None]
